FAERS Safety Report 6522967-8 (Version None)
Quarter: 2009Q4

REPORT INFORMATION
  Report Type: 
  Country: None (occurrence: None)
  Receive Date: 20091230
  Receipt Date: 20091217
  Transmission Date: 20100525
  Serious: Yes (Life-Threatening, Hospitalization, Other)
  Sender: FDA-Public Use
  Company Number: GB-WATSON-2009-10940

PATIENT

DRUGS (12)
  1. SIMVASTATIN (WATSON LABORATORIES) [Suspect]
     Indication: BLOOD CHOLESTEROL INCREASED
     Dosage: 40 MG, UNKNOWN
     Route: 048
     Dates: start: 20090217
  2. CLOMIPRAMINE HYDROCHLORIDE (WATSON LABORATORIES) [Suspect]
     Indication: OBSESSIVE-COMPULSIVE DISORDER
     Dosage: 200 MG, DAILY
     Route: 048
     Dates: start: 20090217
  3. CLOMIPRAMINE HYDROCHLORIDE (WATSON LABORATORIES) [Suspect]
     Indication: ANXIETY
  4. CLOMIPRAMINE HYDROCHLORIDE (WATSON LABORATORIES) [Suspect]
     Indication: DEPRESSION
  5. LISINOPRIL [Suspect]
     Indication: HYPERTENSION
     Dosage: 5 MG, DAILY
     Route: 048
     Dates: start: 20090217
  6. OMEPRAZOLE (WATSON LABORATORIES) [Suspect]
     Indication: DUODENAL ULCER
     Dosage: UNK
     Route: 048
     Dates: start: 20090217
  7. FORTAMET [Suspect]
     Indication: BLOOD GLUCOSE INCREASED
     Dosage: 500 MG, TID
     Route: 048
     Dates: start: 20090217
  8. CLOZARIL [Suspect]
     Indication: SCHIZOPHRENIA
     Dosage: 600 MG, DAILY
     Route: 048
     Dates: start: 20031202
  9. CLOZARIL [Suspect]
     Dosage: UNK
     Route: 048
     Dates: start: 20090217
  10. HYOSCINE [Suspect]
     Indication: DRUG USE FOR UNKNOWN INDICATION
     Dosage: UNK
     Route: 048
     Dates: start: 20090217
  11. SENNA-MINT WAF [Concomitant]
     Indication: CONSTIPATION
     Dosage: UNK
     Route: 048
  12. THIAMINE HCL [Concomitant]
     Indication: DRUG USE FOR UNKNOWN INDICATION
     Dosage: 100 MG, TID
     Route: 048

REACTIONS (6)
  - AGITATION [None]
  - COMA SCALE ABNORMAL [None]
  - MECHANICAL VENTILATION [None]
  - NEUTROPHIL COUNT INCREASED [None]
  - OVERDOSE [None]
  - WHITE BLOOD CELL COUNT INCREASED [None]
